FAERS Safety Report 21360553 (Version 2)
Quarter: 2022Q4

REPORT INFORMATION
  Report Type: Spontaneous
  Country: IT (occurrence: IT)
  Receive Date: 20220921
  Receipt Date: 20221006
  Transmission Date: 20230113
  Serious: Yes (Death, Other)
  Sender: FDA-Public Use
  Company Number: IT-AMGEN-ITASP2022160433

PATIENT

DRUGS (10)
  1. PEGFILGRASTIM [Suspect]
     Active Substance: PEGFILGRASTIM
     Indication: Prophylaxis
     Dosage: UNK UNK, ONE TIME DOSE
     Route: 065
     Dates: start: 202005
  2. FILGRASTIM [Suspect]
     Active Substance: FILGRASTIM
     Indication: Prophylaxis
     Dosage: UNK UNK, QD
     Route: 065
     Dates: start: 202005
  3. CYCLOPHOSPHAMIDE [Concomitant]
     Active Substance: CYCLOPHOSPHAMIDE
     Indication: Prophylaxis
     Dosage: 50 MILLIGRAM/KILOGRAM, QD ( DAY 3 AND DAY 4 AT THE DAILY DOSE)
  4. GRAFALON [Concomitant]
     Active Substance: LAPINE T-LYMPHOCYTE IMMUNE GLOBULIN
     Indication: Prophylaxis
     Dosage: 5 MILLIGRAM/KILOGRAM, ONE TIME DOSE
  5. TREOSULFAN [Concomitant]
     Active Substance: TREOSULFAN
  6. FLUDARABINE [Concomitant]
     Active Substance: FLUDARABINE PHOSPHATE
  7. SIROLIMUS [Concomitant]
     Active Substance: SIROLIMUS
     Dosage: UNK, STARTED ON DAY 5
  8. MYCOPHENOLIC ACID [Concomitant]
     Active Substance: MYCOPHENOLIC ACID
     Dosage: 30 MILLIGRAM/KILOGRAM, AT THE DAILY DOSE DAY 5 TO DAY 28
  9. COTRIMOXAZOLE [Concomitant]
     Active Substance: SULFAMETHOXAZOLE\TRIMETHOPRIM
     Indication: Prophylaxis
     Dosage: UNK
  10. ACYCLOVIR [Concomitant]
     Active Substance: ACYCLOVIR
     Indication: Prophylaxis
     Dosage: UNK

REACTIONS (12)
  - Death [Fatal]
  - Acute graft versus host disease [Unknown]
  - Cytomegalovirus infection reactivation [Unknown]
  - Herpes virus infection [Unknown]
  - Epstein-Barr virus infection reactivation [Unknown]
  - Aspergillus infection [Unknown]
  - Systemic candida [Unknown]
  - Scedosporium infection [Unknown]
  - Transplant dysfunction [Unknown]
  - Chronic graft versus host disease [Unknown]
  - Disease recurrence [Unknown]
  - Urinary tract infection viral [Unknown]
